FAERS Safety Report 16739401 (Version 1)
Quarter: 2019Q3

REPORT INFORMATION
  Report Type: Report from Study
  Country: US (occurrence: US)
  Receive Date: 20190826
  Receipt Date: 20190826
  Transmission Date: 20191005
  Serious: Yes (Other)
  Sender: FDA-Public Use
  Company Number: US-B.I. PHARMACEUTICALS,INC./RIDGEFIELD-2019-MR-000645

PATIENT
  Sex: Male

DRUGS (1)
  1. OFEV [Suspect]
     Active Substance: NINTEDANIB
     Indication: IDIOPATHIC PULMONARY FIBROSIS
     Dosage: OFEV 150 MG TWICE DAILY
     Route: 048
     Dates: start: 20190604, end: 20190719

REACTIONS (7)
  - Deafness [Recovering/Resolving]
  - Myalgia [Unknown]
  - Auditory disorder [Unknown]
  - Abdominal pain upper [Recovering/Resolving]
  - Dizziness [Recovering/Resolving]
  - Renal pain [Not Recovered/Not Resolved]
  - Visual impairment [Recovering/Resolving]
